FAERS Safety Report 20041389 (Version 2)
Quarter: 2021Q4

REPORT INFORMATION
  Report Type: Spontaneous
  Country: MY (occurrence: MY)
  Receive Date: 20211107
  Receipt Date: 20211112
  Transmission Date: 20220303
  Serious: Yes (Death, Life-Threatening, Hospitalization)
  Sender: FDA-Public Use
  Company Number: None

PATIENT
  Age: 27 Year
  Sex: Female

DRUGS (6)
  1. MYCOPHENOLATE MOFETIL [Suspect]
     Active Substance: MYCOPHENOLATE MOFETIL
     Indication: Myasthenia gravis
     Dosage: 1 GRAM, BID (EVERY 12 HRS)
     Route: 048
  2. MYCOPHENOLATE MOFETIL [Suspect]
     Active Substance: MYCOPHENOLATE MOFETIL
     Dosage: UNK, TAPERING DOSE
     Route: 048
  3. PREDNISOLONE [Suspect]
     Active Substance: PREDNISOLONE
     Indication: Myasthenia gravis
     Dosage: 1 MILLIGRAM/KILOGRAM PER DAY
     Route: 048
  4. PREDNISOLONE [Suspect]
     Active Substance: PREDNISOLONE
     Dosage: UNK, TAPERING DOSES AFTER DISCHARGE
     Route: 048
  5. HYDROCORTISONE [Suspect]
     Active Substance: HYDROCORTISONE
     Indication: Myasthenia gravis
     Dosage: 100 MILLIGRAM, EVERY 8 HOURS
     Route: 042
  6. PYRIDOSTIGMINE [Concomitant]
     Active Substance: PYRIDOSTIGMINE
     Indication: Myasthenia gravis
     Dosage: 60 MILLIGRAM, EVERY 6 HRS
     Route: 048

REACTIONS (5)
  - Multiple organ dysfunction syndrome [Fatal]
  - Hepatic encephalopathy [Fatal]
  - Acute on chronic liver failure [Fatal]
  - Hepatitis B [Fatal]
  - Off label use [Unknown]
